FAERS Safety Report 24829041 (Version 2)
Quarter: 2025Q1

REPORT INFORMATION
  Report Type: Spontaneous
  Country: US (occurrence: US)
  Receive Date: 20250110
  Receipt Date: 20250120
  Transmission Date: 20250409
  Serious: No
  Sender: SANDOZ
  Company Number: US-SANDOZ-SDZ2025US001411

PATIENT
  Age: 75 Year
  Sex: Female

DRUGS (1)
  1. VIVELLE-DOT [Suspect]
     Active Substance: ESTRADIOL
     Indication: Oestrogen deficiency
     Route: 062

REACTIONS (2)
  - Dermatitis contact [Unknown]
  - Application site pruritus [Unknown]
